FAERS Safety Report 21658201 (Version 1)
Quarter: 2022Q4

REPORT INFORMATION
  Report Type: Spontaneous
  Country: US (occurrence: None)
  Receive Date: 20221128
  Receipt Date: 20221128
  Transmission Date: 20230112
  Serious: Yes (Hospitalization, Other)
  Sender: FDA-Public Use
  Company Number: None

PATIENT
  Age: 26 Year
  Sex: Female
  Weight: 59.4 kg

DRUGS (4)
  1. MONTELUKAST SODIUM [Suspect]
     Active Substance: MONTELUKAST SODIUM
     Indication: Multiple allergies
     Dates: start: 20220928, end: 20221121
  2. Balcoltra birth control pills [Concomitant]
  3. ZYRTEC [Concomitant]
     Active Substance: CETIRIZINE HYDROCHLORIDE
  4. Metagenics ultra flora probiotics [Concomitant]

REACTIONS (11)
  - Depression [None]
  - Therapy cessation [None]
  - Headache [None]
  - Dyspnoea [None]
  - Psychotic disorder [None]
  - Hallucination [None]
  - Fear [None]
  - Anxiety [None]
  - Nightmare [None]
  - Sleep paralysis [None]
  - Withdrawal syndrome [None]

NARRATIVE: CASE EVENT DATE: 20221126
